FAERS Safety Report 7971063-1 (Version None)
Quarter: 2011Q4

REPORT INFORMATION
  Report Type: 
  Country: None (occurrence: None)
  Receive Date: 20111212
  Receipt Date: 20111206
  Transmission Date: 20120403
  Serious: Yes (Life-Threatening, Other)
  Sender: FDA-Public Use
  Company Number: US-ASTRAZENECA-2011SE74187

PATIENT
  Age: 32 Year
  Sex: Male
  Weight: 113.4 kg

DRUGS (21)
  1. SEROQUEL XR [Suspect]
     Route: 048
  2. SEROQUEL XR [Suspect]
     Route: 048
  3. SEROQUEL XR [Suspect]
     Route: 048
  4. BENZTROPINE MESYLATE [Concomitant]
     Indication: DEPRESSION
  5. SEROQUEL XR [Suspect]
     Indication: POST-TRAUMATIC STRESS DISORDER
     Route: 048
     Dates: start: 20110101
  6. ATIVAN [Concomitant]
     Indication: ANXIETY
  7. NEURONTIN [Concomitant]
     Indication: ANXIETY
  8. SEROQUEL XR [Suspect]
     Route: 048
  9. PROZAC [Concomitant]
  10. SEROQUEL XR [Suspect]
     Route: 048
  11. HALDOL [Concomitant]
     Indication: DEPRESSION
  12. TEGRETOL [Concomitant]
     Indication: DEPRESSION
     Dosage: 200 MGS IN MORNING AND 400 MGS AT NIGHT
  13. SEROQUEL XR [Suspect]
     Indication: BIPOLAR DISORDER
     Route: 048
     Dates: start: 20110101
  14. SEROQUEL XR [Suspect]
     Indication: DEPRESSION
     Route: 048
     Dates: start: 20110101
  15. SEROQUEL XR [Suspect]
     Route: 048
  16. SEROQUEL XR [Suspect]
     Route: 048
  17. TRAZODONE HCL [Concomitant]
     Indication: SLEEP DISORDER
  18. SEROQUEL XR [Suspect]
     Indication: ANXIETY
     Route: 048
     Dates: start: 20110101
  19. SEROQUEL XR [Suspect]
     Route: 048
  20. PAXIL [Concomitant]
  21. CELEXA [Concomitant]

REACTIONS (18)
  - SELF-INJURIOUS IDEATION [None]
  - SUICIDAL IDEATION [None]
  - GAIT DISTURBANCE [None]
  - THERAPEUTIC RESPONSE UNEXPECTED [None]
  - ANGER [None]
  - OFF LABEL USE [None]
  - MEMORY IMPAIRMENT [None]
  - PAIN [None]
  - HALLUCINATION, AUDITORY [None]
  - DEPRESSED LEVEL OF CONSCIOUSNESS [None]
  - INTENTIONAL SELF-INJURY [None]
  - LOSS OF CONSCIOUSNESS [None]
  - DRUG DOSE OMISSION [None]
  - FEAR [None]
  - HYPERSOMNIA [None]
  - STAB WOUND [None]
  - HAEMORRHAGE [None]
  - INSOMNIA [None]
